FAERS Safety Report 25568079 (Version 2)
Quarter: 2025Q3

REPORT INFORMATION
  Report Type: Spontaneous
  Country: US (occurrence: US)
  Receive Date: 20250716
  Receipt Date: 20250728
  Transmission Date: 20251020
  Serious: Yes (Life-Threatening, Hospitalization, Other)
  Sender: PFIZER
  Company Number: US-PFIZER INC-PV202500084747

PATIENT
  Age: 37 Year
  Sex: Male

DRUGS (4)
  1. FENTANYL CITRATE [Interacting]
     Active Substance: FENTANYL CITRATE
     Route: 042
  2. FENTANYL CITRATE [Interacting]
     Active Substance: FENTANYL CITRATE
     Route: 055
  3. COCAINE [Interacting]
     Active Substance: COCAINE
     Route: 042
  4. COCAINE [Interacting]
     Active Substance: COCAINE
     Route: 055

REACTIONS (4)
  - Drug interaction [Recovering/Resolving]
  - Overdose [Recovering/Resolving]
  - Pulmonary alveolar haemorrhage [Recovering/Resolving]
  - Off label use [Unknown]
